FAERS Safety Report 9643040 (Version 1)
Quarter: 2013Q4

REPORT INFORMATION
  Report Type: Spontaneous
  Country: MY (occurrence: MY)
  Receive Date: 20131024
  Receipt Date: 20131024
  Transmission Date: 20140711
  Serious: Yes (Other)
  Sender: FDA-Public Use
  Company Number: MY-SA-2013SA107014

PATIENT
  Age: 54 Year
  Sex: Male

DRUGS (7)
  1. AFLIBERCEPT [Suspect]
     Indication: COLORECTAL CANCER METASTATIC
     Route: 065
  2. AFLIBERCEPT [Suspect]
     Indication: COLORECTAL CANCER METASTATIC
     Route: 065
  3. AFLIBERCEPT [Suspect]
     Indication: COLORECTAL CANCER METASTATIC
     Dosage: DOSE REDUCED
     Route: 065
  4. AFLIBERCEPT [Suspect]
     Indication: COLORECTAL CANCER METASTATIC
     Route: 065
  5. LEUCOVORIN [Concomitant]
     Indication: COLORECTAL CANCER METASTATIC
  6. FLUOROURACIL [Concomitant]
     Indication: COLORECTAL CANCER METASTATIC
  7. IRINOTECAN [Concomitant]
     Indication: COLORECTAL CANCER METASTATIC

REACTIONS (3)
  - Dermatitis acneiform [Recovered/Resolved]
  - Scrotal ulcer [Recovered/Resolved]
  - Pain [Recovered/Resolved]
